FAERS Safety Report 10758633 (Version 1)
Quarter: 2015Q1

REPORT INFORMATION
  Report Type: Spontaneous
  Country: US (occurrence: US)
  Receive Date: 20150203
  Receipt Date: 20150203
  Transmission Date: 20150721
  Serious: Yes (Death, Hospitalization)
  Sender: FDA-Public Use
  Company Number: US-ACTAVIS-2015-00888

PATIENT
  Sex: Female

DRUGS (3)
  1. IMIPENEM [Suspect]
     Active Substance: IMIPENEM
     Indication: NECROTISING FASCIITIS STREPTOCOCCAL
     Dosage: UNK
     Route: 065
  2. VANCOMYCIN HYDROCHLORIDE (UNKNOWN) [Suspect]
     Active Substance: VANCOMYCIN HYDROCHLORIDE
     Indication: NECROTISING FASCIITIS STREPTOCOCCAL
     Dosage: UNK
     Route: 065
  3. CLINDAMYCIN (UNKNOWN) [Suspect]
     Active Substance: CLINDAMYCIN\CLINDAMYCIN PHOSPHATE
     Indication: NECROTISING FASCIITIS STREPTOCOCCAL
     Dosage: UNK
     Route: 065

REACTIONS (2)
  - Megacolon [Fatal]
  - Clostridium colitis [Fatal]
